FAERS Safety Report 21305316 (Version 1)
Quarter: 2022Q3

REPORT INFORMATION
  Report Type: Spontaneous
  Country: CH (occurrence: CH)
  Receive Date: 20220907
  Receipt Date: 20220907
  Transmission Date: 20221026
  Serious: Yes (Hospitalization, Other)
  Sender: FDA-Public Use
  Company Number: None

PATIENT
  Age: 81 Year
  Sex: Male
  Weight: 76.7 kg

DRUGS (20)
  1. XANAX [Interacting]
     Active Substance: ALPRAZOLAM
     Indication: Anxiety
     Dosage: 0.25 MG, 1X/DAY, AS NECESSARY
     Route: 048
  2. AMLODIPINE BESYLATE [Suspect]
     Active Substance: AMLODIPINE BESYLATE
     Indication: Hypertension
     Dosage: 5 MG, 1X/DAY
     Route: 048
  3. BISOPROLOL FUMARATE [Interacting]
     Active Substance: BISOPROLOL FUMARATE
     Indication: Myocardial ischaemia
     Dosage: 1.25 MG, 1X/DAY
     Route: 048
  4. BISOPROLOL FUMARATE [Interacting]
     Active Substance: BISOPROLOL FUMARATE
     Indication: Cardiac valve disease
  5. BISOPROLOL FUMARATE [Interacting]
     Active Substance: BISOPROLOL FUMARATE
     Indication: Atrial fibrillation
  6. PAROXETINE [Interacting]
     Active Substance: PAROXETINE
     Indication: Sleep disorder
     Dosage: 20 MG, 1X/DAY
     Route: 048
  7. ZOLPIDEM [Interacting]
     Active Substance: ZOLPIDEM TARTRATE
     Indication: Depression
     Dosage: 10 MG, 1X/DAY
     Route: 048
  8. RANEXA [Interacting]
     Active Substance: RANOLAZINE
     Indication: Cardiac valve disease
     Dosage: 375 MG, 1X/DAY
     Route: 048
  9. RANEXA [Interacting]
     Active Substance: RANOLAZINE
     Indication: Myocardial ischaemia
  10. RANEXA [Interacting]
     Active Substance: RANOLAZINE
     Indication: Atrial fibrillation
  11. SINTROM [Concomitant]
     Active Substance: ACENOCOUMAROL
     Indication: Atrial fibrillation
     Dosage: UNK UNK, AS NEEDED
     Route: 048
  12. SINTROM [Concomitant]
     Active Substance: ACENOCOUMAROL
     Indication: Myocardial ischaemia
  13. SINTROM [Concomitant]
     Active Substance: ACENOCOUMAROL
     Indication: Cardiac valve disease
  14. ALOPUR [Concomitant]
     Indication: Hyperuricaemia
     Dosage: UNK
     Route: 048
  15. CHOLECALCIFEROL [Concomitant]
     Active Substance: CHOLECALCIFEROL
     Indication: Vitamin D deficiency
     Dosage: UNK
     Route: 048
  16. CARBOMER [Concomitant]
     Active Substance: CARBOMER
     Indication: Dry eye
     Dosage: UNK
  17. DAFALGAN [Concomitant]
     Active Substance: ACETAMINOPHEN
     Indication: Pain
     Dosage: UNK UNK, AS NEEDED
     Route: 048
  18. GLYCERIN\MINERAL OIL\PETROLATUM [Concomitant]
     Active Substance: GLYCERIN\MINERAL OIL\PETROLATUM
     Indication: Pruritus
     Dosage: UNK UNK, AS NEEDED
     Route: 003
  19. FIG FRUIT OIL\SORBITOL [Concomitant]
     Active Substance: FIG FRUIT OIL\SORBITOL
     Indication: Constipation
     Dosage: UNK UNK, AS NEEDED
     Route: 048
  20. MICROLAX [SODIUM CITRATE;SODIUM LAURYL SULFOACETATE] [Concomitant]
     Indication: Constipation
     Dosage: UNK UNK, AS NEEDED
     Route: 054

REACTIONS (6)
  - Confusional state [Not Recovered/Not Resolved]
  - Fall [Not Recovered/Not Resolved]
  - Drug interaction [Not Recovered/Not Resolved]
  - Drug interaction [Not Recovered/Not Resolved]
  - Electrocardiogram QT prolonged [Unknown]
  - Electrocardiogram T wave abnormal [Unknown]

NARRATIVE: CASE EVENT DATE: 20220601
